FAERS Safety Report 9394196 (Version 2)
Quarter: 2013Q4

REPORT INFORMATION
  Report Type: Report from Study
  Country: JP (occurrence: JP)
  Receive Date: 20130711
  Receipt Date: 20131007
  Transmission Date: 20140711
  Serious: Yes (Other)
  Sender: FDA-Public Use
  Company Number: JP-ROCHE-1159417

PATIENT
  Age: 62 Year
  Sex: Male
  Weight: 58 kg

DRUGS (8)
  1. PEG-INTERFERON ALFA 2A [Suspect]
     Indication: HEPATIC CIRRHOSIS
     Route: 058
     Dates: start: 20120117, end: 20121213
  2. RIBAVIRIN [Suspect]
     Indication: HEPATIC CIRRHOSIS
     Route: 048
     Dates: start: 20120117, end: 20121219
  3. PARIET [Concomitant]
     Indication: PROPHYLAXIS
     Route: 048
  4. PROMAC (JAPAN) [Concomitant]
     Indication: PROPHYLAXIS
     Route: 048
  5. MAGMITT [Concomitant]
     Indication: PROPHYLAXIS
     Route: 048
  6. DIMETHICONE [Concomitant]
     Indication: PROPHYLAXIS
     Route: 048
  7. MYSLEE [Concomitant]
     Route: 048
     Dates: start: 20120117
  8. LEVOCARNITINE [Concomitant]
     Route: 048
     Dates: start: 20120524

REACTIONS (2)
  - Pancytopenia [Not Recovered/Not Resolved]
  - Insomnia [Recovered/Resolved]
